FAERS Safety Report 18261705 (Version 1)
Quarter: 2020Q3

REPORT INFORMATION
  Report Type: Spontaneous
  Country: CA (occurrence: CA)
  Receive Date: 20200914
  Receipt Date: 20200914
  Transmission Date: 20201103
  Serious: Yes (Hospitalization)
  Sender: FDA-Public Use
  Company Number: CA-ACCORD-200222

PATIENT
  Age: 77 Year
  Sex: Male
  Weight: 78 kg

DRUGS (6)
  1. PREDNISONE. [Concomitant]
     Active Substance: PREDNISONE
  2. CYANOCOBALAMIN. [Concomitant]
     Active Substance: CYANOCOBALAMIN
  3. NORVASC [Concomitant]
     Active Substance: AMLODIPINE BESYLATE
  4. DOCETAXEL. [Suspect]
     Active Substance: DOCETAXEL
     Indication: PROSTATE CANCER
     Dosage: 1 EVERY 21 DAYS
     Route: 065
  5. CHARDON MARIE [Concomitant]
  6. SENOKOT [Concomitant]
     Active Substance: SENNOSIDES

REACTIONS (3)
  - Pyrexia [Unknown]
  - Febrile neutropenia [Unknown]
  - Oropharyngeal pain [Unknown]
